FAERS Safety Report 5451829-2 (Version None)
Quarter: 2007Q3

REPORT INFORMATION
  Report Type: 
  Country: None (occurrence: None)
  Receive Date: 20070912
  Receipt Date: 20070831
  Transmission Date: 20080115
  Serious: Yes (Other)
  Sender: FDA-Public Use
  Company Number: 160871ISR

PATIENT
  Age: 51 Year
  Sex: Male

DRUGS (5)
  1. VINCRISTINE [Suspect]
     Dosage: (1.4 MG/M2)
     Dates: end: 20051001
  2. CYCLOPHOSPHAMIDE [Suspect]
     Dosage: (750 MG/M2)
     Dates: end: 20051001
  3. DOXORUBICIN HCL [Suspect]
     Dosage: (50 MG/M2)
     Dates: end: 20051001
  4. METHYLPREDNISOLONE [Suspect]
     Dosage: (100 MG)
     Dates: end: 20051001
  5. RITUXIMAB [Suspect]
     Dosage: (375 MG/M2)
     Dates: end: 20051001

REACTIONS (7)
  - BEDRIDDEN [None]
  - CONDITION AGGRAVATED [None]
  - CSF PROTEIN INCREASED [None]
  - DYSPHAGIA [None]
  - GUILLAIN-BARRE SYNDROME [None]
  - LYMPHOCYTE COUNT DECREASED [None]
  - WHITE BLOOD CELL COUNT DECREASED [None]
